FAERS Safety Report 8482126-9 (Version None)
Quarter: 2012Q3

REPORT INFORMATION
  Report Type: 
  Country: None (occurrence: None)
  Receive Date: 20120702
  Receipt Date: 20120618
  Transmission Date: 20120928
  Serious: No
  Sender: FDA-Public Use
  Company Number: US-ASTRAZENECA-2012SE28315

PATIENT
  Age: 73 Year
  Sex: Female
  Weight: 46.7 kg

DRUGS (2)
  1. SYMBICORT [Suspect]
     Dosage: 160/4.5 MCG, 2 PUFFS TWO TIMES A DAY
     Route: 055
     Dates: start: 20090101
  2. ADVAIR DISKUS 100/50 [Concomitant]

REACTIONS (4)
  - DYSPNOEA [None]
  - DRUG INEFFECTIVE [None]
  - INCREASED VISCOSITY OF BRONCHIAL SECRETION [None]
  - INCREASED UPPER AIRWAY SECRETION [None]
